FAERS Safety Report 7051761-7 (Version None)
Quarter: 2010Q4

REPORT INFORMATION
  Report Type: 
  Country: None (occurrence: None)
  Receive Date: 20101019
  Receipt Date: 20101015
  Transmission Date: 20110411
  Serious: Yes (Death, Other)
  Sender: FDA-Public Use
  Company Number: PHHY2010US52922

PATIENT
  Sex: Male
  Weight: 68.94 kg

DRUGS (1)
  1. EXJADE [Suspect]
     Indication: NEOPLASM
     Dosage: 2000 MG/DAILY
     Route: 048
     Dates: start: 20071126

REACTIONS (2)
  - INTESTINAL PERFORATION [None]
  - SEPSIS [None]
